FAERS Safety Report 24086461 (Version 1)
Quarter: 2024Q3

REPORT INFORMATION
  Report Type: Spontaneous
  Country: US (occurrence: US)
  Receive Date: 20240712
  Receipt Date: 20240712
  Transmission Date: 20241016
  Serious: No
  Sender: MERCK
  Company Number: US-009507513-2406USA006071

PATIENT
  Age: 57 Year
  Sex: Male

DRUGS (2)
  1. INVANZ [Suspect]
     Active Substance: ERTAPENEM SODIUM
     Indication: Enterobacter infection
     Dosage: UNK
     Route: 042
  2. CEFEPIME [Concomitant]
     Active Substance: CEFEPIME HYDROCHLORIDE
     Indication: Enterobacter infection
     Route: 042

REACTIONS (2)
  - Product use in unapproved indication [Unknown]
  - Incorrect product administration duration [Unknown]
